FAERS Safety Report 12238775 (Version 1)
Quarter: 2016Q2

REPORT INFORMATION
  Report Type: Spontaneous
  Country: US (occurrence: US)
  Receive Date: 20160405
  Receipt Date: 20160405
  Transmission Date: 20160815
  Serious: Yes (Other)
  Sender: FDA-Public Use
  Company Number: US-TEVA-594235USA

PATIENT
  Sex: Female
  Weight: 59.02 kg

DRUGS (1)
  1. WARFARIN [Suspect]
     Active Substance: WARFARIN
     Indication: THROMBOSIS PROPHYLAXIS
     Dates: start: 20150722

REACTIONS (5)
  - Vein discolouration [Unknown]
  - Asthenia [Unknown]
  - Mass [Unknown]
  - Haemorrhage [Unknown]
  - Contusion [Unknown]
